FAERS Safety Report 18252227 (Version 4)
Quarter: 2021Q1

REPORT INFORMATION
  Report Type: Spontaneous
  Country: US (occurrence: US)
  Receive Date: 20200910
  Receipt Date: 20210319
  Transmission Date: 20210419
  Serious: Yes (Other)
  Sender: FDA-Public Use
  Company Number: US-FARMAPROD-202005-0707

PATIENT
  Age: 71 Year
  Sex: Female

DRUGS (5)
  1. THYROID MEDICATION [Concomitant]
     Active Substance: UNSPECIFIED INGREDIENT
  2. OXERVATE [Suspect]
     Active Substance: CENEGERMIN-BKBJ
     Route: 047
     Dates: start: 20210224
  3. OXERVATE [Suspect]
     Active Substance: CENEGERMIN-BKBJ
     Indication: NEUROTROPHIC KERATOPATHY
     Route: 047
     Dates: start: 20191121, end: 202001
  4. OXERVATE [Suspect]
     Active Substance: CENEGERMIN-BKBJ
     Route: 047
     Dates: start: 20200401, end: 202005
  5. OXERVATE [Suspect]
     Active Substance: CENEGERMIN-BKBJ
     Route: 047
     Dates: start: 20201026, end: 20201228

REACTIONS (9)
  - Alopecia [Not Recovered/Not Resolved]
  - Corneal transplant [Unknown]
  - Thyroid disorder [Unknown]
  - Eye laser surgery [Unknown]
  - Product distribution issue [Unknown]
  - Product dose omission issue [Unknown]
  - Off label use [Unknown]
  - Eyelid scar [Unknown]
  - Eye pain [Unknown]

NARRATIVE: CASE EVENT DATE: 20210202
